FAERS Safety Report 16204342 (Version 2)
Quarter: 2019Q2

REPORT INFORMATION
  Report Type: Spontaneous
  Country: ES (occurrence: ES)
  Receive Date: 20190416
  Receipt Date: 20190419
  Transmission Date: 20190711
  Serious: Yes (Death)
  Sender: FDA-Public Use
  Company Number: ES-PFIZER INC-2019157186

PATIENT
  Age: 67 Year
  Sex: Male

DRUGS (5)
  1. FLUOROURACIL. [Interacting]
     Active Substance: FLUOROURACIL
     Indication: RECTAL CANCER
     Dates: start: 20160914
  2. PANITUMUMAB [Concomitant]
     Active Substance: PANITUMUMAB
  3. FOLINIC ACID [Concomitant]
     Active Substance: LEUCOVORIN
  4. OXALIPLATIN. [Concomitant]
     Active Substance: OXALIPLATIN
  5. BRIVUDINE [Suspect]
     Active Substance: BRIVUDINE
     Indication: FOLLICULITIS
     Dosage: 125 MG, 1X/DAY
     Route: 048
     Dates: start: 20170118, end: 20170124

REACTIONS (4)
  - Mucosal inflammation [Fatal]
  - Pancytopenia [Fatal]
  - Multiple organ dysfunction syndrome [Fatal]
  - Labelled drug-drug interaction medication error [Recovered/Resolved]

NARRATIVE: CASE EVENT DATE: 20170118
